FAERS Safety Report 6398378-5 (Version None)
Quarter: 2009Q4

REPORT INFORMATION
  Report Type: 
  Country: None (occurrence: None)
  Receive Date: 20091013
  Receipt Date: 20091012
  Transmission Date: 20100525
  Serious: Yes (Hospitalization)
  Sender: FDA-Public Use
  Company Number: AU-ROXANE LABORATORIES, INC.-2009-RO-01041RO

PATIENT
  Sex: Male

DRUGS (11)
  1. MIDAZOLAM HCL [Suspect]
     Indication: SEDATION
     Route: 042
  2. MIDAZOLAM HCL [Suspect]
     Route: 042
  3. HALOPERIDOL [Suspect]
     Indication: SEDATION
     Route: 042
  4. HALOPERIDOL [Suspect]
     Route: 048
  5. CHLORPROMAZINE [Suspect]
     Indication: SEDATION
     Route: 048
  6. CLONAZEPAM [Suspect]
     Indication: SEDATION
     Route: 048
  7. SALINE [Concomitant]
     Indication: SEDATION
     Route: 042
  8. OXYGEN [Concomitant]
     Indication: SEDATION
  9. THIOPENTAL SODIUM [Concomitant]
     Indication: SEDATION
  10. THIOPENTAL SODIUM [Concomitant]
     Route: 042
  11. THIOPENTAL SODIUM [Concomitant]
     Route: 042

REACTIONS (4)
  - AGGRESSION [None]
  - AGITATION [None]
  - POISONING [None]
  - VERBAL ABUSE [None]
